FAERS Safety Report 15301170 (Version 2)
Quarter: 2018Q3

REPORT INFORMATION
  Report Type: Spontaneous
  Country: US (occurrence: US)
  Receive Date: 20180821
  Receipt Date: 20180824
  Transmission Date: 20181010
  Serious: Yes (Hospitalization, Other)
  Sender: FDA-Public Use
  Company Number: US-UCBSA-2018035692

PATIENT
  Age: 83 Year
  Sex: Male
  Weight: 63 kg

DRUGS (5)
  1. POTASSIUM [Concomitant]
     Active Substance: POTASSIUM
     Indication: SUPPLEMENTATION THERAPY
  2. FLOMAX [Concomitant]
     Active Substance: TAMSULOSIN HYDROCHLORIDE
     Indication: PROSTATIC DISORDER
     Dosage: UNK
  3. IRON [Concomitant]
     Active Substance: IRON
     Indication: SUPPLEMENTATION THERAPY
  4. ASA [Concomitant]
     Active Substance: ASPIRIN
     Indication: CARDIOVASCULAR EVENT PROPHYLAXIS
  5. NEUPRO [Suspect]
     Active Substance: ROTIGOTINE
     Indication: PARKINSON^S DISEASE
     Dosage: 4 MG, ONCE DAILY (QD)
     Dates: start: 2017

REACTIONS (3)
  - Lip swelling [Recovered/Resolved]
  - Sepsis [Recovered/Resolved]
  - Pneumonia aspiration [Recovered/Resolved]

NARRATIVE: CASE EVENT DATE: 201801
